FAERS Safety Report 20079557 (Version 1)
Quarter: 2021Q4

REPORT INFORMATION
  Report Type: Report from Study
  Country: BR (occurrence: BR)
  Receive Date: 20211117
  Receipt Date: 20211117
  Transmission Date: 20220303
  Serious: Yes (Other)
  Sender: FDA-Public Use
  Company Number: BR-NOVARTISPH-NVSC2021BR258826

PATIENT
  Age: 51 Year
  Sex: Female

DRUGS (5)
  1. TAMOXIFEN [Suspect]
     Active Substance: TAMOXIFEN
     Indication: Breast cancer
     Dosage: UNK
     Route: 065
     Dates: start: 201102
  2. LETROZOLE [Suspect]
     Active Substance: LETROZOLE
     Indication: Breast cancer
     Dosage: 6 CYCLES
     Route: 065
     Dates: start: 201607
  3. BEVACIZUMAB [Concomitant]
     Active Substance: BEVACIZUMAB
     Indication: Product used for unknown indication
     Dosage: UNK
     Route: 065
     Dates: start: 201603, end: 201701
  4. DOCETAXEL [Concomitant]
     Active Substance: DOCETAXEL
     Indication: Product used for unknown indication
     Dosage: UNK (6 CYCLES)
     Route: 065
     Dates: start: 201603, end: 20160630
  5. GOSERELIN [Concomitant]
     Active Substance: GOSERELIN
     Indication: Product used for unknown indication
     Dosage: UNK
     Route: 065
     Dates: start: 201102

REACTIONS (7)
  - Respiratory failure [Unknown]
  - Adenocarcinoma metastatic [Unknown]
  - Hypertension [Unknown]
  - Condition aggravated [Unknown]
  - Chest pain [Unknown]
  - Fatigue [Unknown]
  - Pleural disorder [Unknown]

NARRATIVE: CASE EVENT DATE: 20191201
